FAERS Safety Report 21284547 (Version 1)
Quarter: 2022Q3

REPORT INFORMATION
  Report Type: Spontaneous
  Country: US (occurrence: US)
  Receive Date: 20220902
  Receipt Date: 20220902
  Transmission Date: 20221027
  Serious: No
  Sender: FDA-Public Use
  Company Number: US-Accord-240314

PATIENT
  Sex: Male

DRUGS (1)
  1. BICALUTAMIDE [Suspect]
     Active Substance: BICALUTAMIDE
     Indication: Prostatomegaly
     Dosage: 50 MG/ORAL/DAILY
     Route: 048
     Dates: start: 20200806, end: 20201013

REACTIONS (3)
  - Breast swelling [Not Recovered/Not Resolved]
  - Nipple swelling [Not Recovered/Not Resolved]
  - Breast pain [Not Recovered/Not Resolved]
